FAERS Safety Report 12794885 (Version 1)
Quarter: 2016Q3

REPORT INFORMATION
  Report Type: Spontaneous
  Country: US (occurrence: US)
  Receive Date: 20160929
  Receipt Date: 20160929
  Transmission Date: 20161109
  Serious: Yes (Other)
  Sender: FDA-Public Use
  Company Number: US-BAYER-2016-186660

PATIENT
  Age: 47 Year
  Sex: Female

DRUGS (1)
  1. MIRENA [Suspect]
     Active Substance: LEVONORGESTREL
     Indication: CONTRACEPTION
     Dosage: 20 MCG/24HR, CONT
     Route: 015
     Dates: start: 20160826, end: 20160907

REACTIONS (6)
  - Acne [Unknown]
  - Vaginal haemorrhage [Unknown]
  - Headache [Unknown]
  - Genital haemorrhage [Unknown]
  - Nausea [Unknown]
  - Patient dissatisfaction with treatment [None]

NARRATIVE: CASE EVENT DATE: 2016
